FAERS Safety Report 6025171-5 (Version None)
Quarter: 2008Q4

REPORT INFORMATION
  Report Type: 
  Country: None (occurrence: None)
  Receive Date: 20081231
  Receipt Date: 20081223
  Transmission Date: 20090506
  Serious: Yes (Other)
  Sender: FDA-Public Use
  Company Number: US-JNJFOC-20081002738

PATIENT
  Sex: Female
  Weight: 61.24 kg

DRUGS (13)
  1. REMICADE [Suspect]
     Route: 042
  2. REMICADE [Suspect]
     Route: 042
  3. REMICADE [Suspect]
     Indication: CROHN'S DISEASE
     Route: 042
  4. ACETAMINOPHEN [Suspect]
     Indication: HEADACHE
  5. ACETAMINOPHEN [Suspect]
     Indication: PREMEDICATION
  6. ELMIRON [Concomitant]
  7. BENADRYL [Concomitant]
     Indication: PREMEDICATION
  8. IMURAN [Concomitant]
  9. IMURAN [Concomitant]
  10. CITRACAL [Concomitant]
  11. TRAMADOL [Concomitant]
     Dosage: AS NEEDED
  12. OMEPRAZOLE [Concomitant]
  13. STEROIDS [Concomitant]
     Indication: PREMEDICATION

REACTIONS (5)
  - CHEST PAIN [None]
  - HEADACHE [None]
  - INFUSION RELATED REACTION [None]
  - LIVER FUNCTION TEST ABNORMAL [None]
  - VISION BLURRED [None]
